FAERS Safety Report 12191029 (Version 1)
Quarter: 2016Q1

REPORT INFORMATION
  Report Type: Spontaneous
  Country: CA (occurrence: None)
  Receive Date: 20160317
  Receipt Date: 20160317
  Transmission Date: 20160526
  Serious: Yes (Hospitalization)
  Sender: FDA-Public Use
  Company Number: CA-ALSI-201600053

PATIENT
  Sex: Male

DRUGS (1)
  1. NITROUS OXIDE. [Suspect]
     Active Substance: NITROUS OXIDE
     Indication: SUBSTANCE ABUSE
     Route: 055

REACTIONS (8)
  - Personality change [None]
  - Substance abuse [None]
  - Aggression [None]
  - Neutrophilia [None]
  - Blood homocysteine increased [None]
  - Amino acid level increased [None]
  - Psychotic disorder [None]
  - Vitamin B12 decreased [None]
